FAERS Safety Report 9767925 (Version 2)
Quarter: 2013Q4

REPORT INFORMATION
  Report Type: Report from Study
  Country: BR (occurrence: BR)
  Receive Date: 20131217
  Receipt Date: 20131217
  Transmission Date: 20140711
  Serious: Yes (Other)
  Sender: FDA-Public Use
  Company Number: PHHY2013BR115498

PATIENT
  Sex: Female
  Weight: 54.4 kg

DRUGS (9)
  1. ACLASTA [Suspect]
     Indication: OSTEOPOROSIS
     Dosage: 5 MG/100ML, YEARLY
     Route: 042
     Dates: start: 2008
  2. ACLASTA [Suspect]
     Dosage: 5 MG/100ML, YEARLY
     Route: 042
  3. ACLASTA [Suspect]
     Dosage: 5 MG/100ML, YEARLY
     Route: 042
  4. PANTOPRAZOLE [Concomitant]
     Indication: GASTROINTESTINAL DISORDER
     Dosage: 1 TABLET (40 MG), DAILY
     Route: 048
  5. PROTOS (PROTOPORPHYRIN DISODIUM) [Concomitant]
     Dosage: UNK UKN, UNK
     Dates: start: 2013
  6. CALCIUM CARBONATE [Concomitant]
     Indication: OSTEOPOROSIS
     Dosage: 1 TABLET (500 MG), DAILY
     Route: 048
     Dates: start: 2013
  7. SIMVASTATIN [Concomitant]
     Indication: BLOOD CHOLESTEROL INCREASED
     Dosage: 1 TABLET (20 MG), TABLET
     Route: 048
     Dates: start: 2012
  8. CLONAZEPAM [Concomitant]
     Indication: SLEEP DISORDER
     Dosage: 1 TABLET (2 MG), DAILY
     Route: 048
  9. RECONTER [Concomitant]
     Indication: DEPRESSION
     Dosage: 1 TABLET (50 MG), DAILY
     Dates: start: 201304

REACTIONS (6)
  - Arrhythmia [Not Recovered/Not Resolved]
  - Hypertension [Not Recovered/Not Resolved]
  - Osteoporosis [Not Recovered/Not Resolved]
  - Bone density decreased [Not Recovered/Not Resolved]
  - Disease progression [Not Recovered/Not Resolved]
  - Pain [Not Recovered/Not Resolved]
